FAERS Safety Report 16639036 (Version 1)
Quarter: 2019Q3

REPORT INFORMATION
  Report Type: Report from Study
  Country: US (occurrence: US)
  Receive Date: 20190726
  Receipt Date: 20190726
  Transmission Date: 20191004
  Serious: Yes (Other)
  Sender: FDA-Public Use
  Company Number: US-UCBSA-2019002716

PATIENT
  Age: 70 Year
  Sex: Female

DRUGS (5)
  1. LEVETIRACETAM. [Suspect]
     Active Substance: LEVETIRACETAM
     Indication: PARTIAL SEIZURES
     Dosage: 1500 MG, 2X/DAY (BID)
     Dates: start: 20170426, end: 2019
  2. TEGRETOL [Concomitant]
     Active Substance: CARBAMAZEPINE
     Dosage: DOSE UPPED TO 100MG
  3. TEGRETOL [Concomitant]
     Active Substance: CARBAMAZEPINE
     Indication: PRODUCT USED FOR UNKNOWN INDICATION
     Dosage: UNK
  4. LEVETIRACETAM. [Suspect]
     Active Substance: LEVETIRACETAM
     Indication: EPILEPSY
     Dosage: LOWERED THE DOSE TO 2 A DAY
  5. LEVETIRACETAM. [Suspect]
     Active Substance: LEVETIRACETAM
     Indication: SEIZURE

REACTIONS (10)
  - Cataract [Unknown]
  - Scoliosis [Unknown]
  - Intentional product misuse [Unknown]
  - Intervertebral disc protrusion [Unknown]
  - Alopecia [Not Recovered/Not Resolved]
  - Seizure [Recovered/Resolved]
  - Spondylitis [Unknown]
  - Off label use [Unknown]
  - Arthropathy [Unknown]
  - Product dose omission [Unknown]

NARRATIVE: CASE EVENT DATE: 20170426
